FAERS Safety Report 8244377-8 (Version None)
Quarter: 2012Q1

REPORT INFORMATION
  Report Type: 
  Country: None (occurrence: None)
  Receive Date: 20120329
  Receipt Date: 20120322
  Transmission Date: 20120608
  Serious: Yes (Other)
  Sender: FDA-Public Use
  Company Number: JP-JNJFOC-20120209871

PATIENT
  Sex: Female
  Weight: 47 kg

DRUGS (4)
  1. HALOPERIDOL [Concomitant]
     Indication: DEMENTIA ALZHEIMER'S TYPE
     Route: 048
     Dates: start: 20110723, end: 20111215
  2. GALANTAMINE HYDROBROMIDE [Suspect]
     Route: 048
     Dates: start: 20110812, end: 20110825
  3. GALANTAMINE HYDROBROMIDE [Suspect]
     Indication: DEMENTIA ALZHEIMER'S TYPE
     Route: 048
     Dates: start: 20110826, end: 20110913
  4. TIAPRIDE HYDROCHLORIDE [Concomitant]
     Indication: DEMENTIA ALZHEIMER'S TYPE
     Route: 048
     Dates: start: 20110812

REACTIONS (1)
  - LOSS OF CONSCIOUSNESS [None]
